FAERS Safety Report 20491101 (Version 1)
Quarter: 2022Q1

REPORT INFORMATION
  Report Type: Spontaneous
  Country: FR (occurrence: FR)
  Receive Date: 20220218
  Receipt Date: 20220218
  Transmission Date: 20220423
  Serious: Yes (Congenital Anomaly, Other)
  Sender: FDA-Public Use
  Company Number: FR-ABBVIE-22K-056-4279162-00

PATIENT
  Sex: Male

DRUGS (2)
  1. VALPROATE SODIUM [Suspect]
     Active Substance: VALPROATE SODIUM
     Indication: Maternal exposure timing unspecified
     Route: 064
  2. FOLIC ACID [Concomitant]
     Active Substance: FOLIC ACID
     Indication: Product used for unknown indication

REACTIONS (40)
  - Foetal anticonvulsant syndrome [Unknown]
  - Dysmorphism [Unknown]
  - Skull malformation [Unknown]
  - Educational problem [Unknown]
  - Joint laxity [Unknown]
  - Dysgraphia [Unknown]
  - Agitation [Unknown]
  - Congenital skin dimples [Unknown]
  - Language disorder [Unknown]
  - Behaviour disorder [Unknown]
  - Generalised anxiety disorder [Unknown]
  - Attention deficit hyperactivity disorder [Unknown]
  - Mental disorder [Unknown]
  - Temporomandibular joint syndrome [Unknown]
  - Prognathism [Unknown]
  - Mouth breathing [Unknown]
  - Speech disorder developmental [Unknown]
  - Femur fracture [Unknown]
  - Congenital foot malformation [Unknown]
  - Cognitive disorder [Unknown]
  - Speech sound disorder [Unknown]
  - Deafness congenital [Unknown]
  - Drooling [Unknown]
  - Emotional disorder [Unknown]
  - Impatience [Unknown]
  - Speech sound disorder [Unknown]
  - Psychomotor skills impaired [Unknown]
  - Intellectual disability [Unknown]
  - Nose deformity [Unknown]
  - Spinal disorder [Unknown]
  - Frustration tolerance decreased [Unknown]
  - Petit mal epilepsy [Unknown]
  - Foot deformity [Unknown]
  - Ear, nose and throat disorder [Unknown]
  - Developmental delay [Unknown]
  - Enuresis [Unknown]
  - Neurodevelopmental disorder [Unknown]
  - Disturbance in attention [Unknown]
  - Learning disorder [Unknown]
  - Foetal exposure during pregnancy [Unknown]
